FAERS Safety Report 6243655-1 (Version None)
Quarter: 2009Q2

REPORT INFORMATION
  Report Type: 
  Country: None (occurrence: None)
  Receive Date: 20090618
  Receipt Date: 20081212
  Transmission Date: 20091009
  Serious: Yes (Other)
  Sender: FDA-Public Use
  Company Number: CIP08002698

PATIENT
  Sex: Female

DRUGS (1)
  1. ACTONEL [Suspect]
     Dosage: 75 MG, ORAL
     Route: 048
     Dates: start: 20040101

REACTIONS (4)
  - ACCIDENT [None]
  - ANKLE FRACTURE [None]
  - FALL [None]
  - GAIT DISTURBANCE [None]
